FAERS Safety Report 8375658-5 (Version None)
Quarter: 2012Q1

REPORT INFORMATION
  Report Type: 
  Country: None (occurrence: None)
  Receive Date: 20120323
  Receipt Date: 20110225
  Transmission Date: 20120608
  Serious: Yes (Hospitalization)
  Sender: FDA-Public Use
  Company Number: 163-21880-11020126

PATIENT
  Age: 80 Year
  Sex: Female

DRUGS (19)
  1. PROTONIX [Concomitant]
  2. BUMEX [Concomitant]
  3. PRILOSEC [Concomitant]
  4. NORVASC [Concomitant]
  5. VOLTAREN [Concomitant]
  6. ATENOLOL [Concomitant]
  7. LOMOTIL [Concomitant]
  8. DETROL [Concomitant]
  9. VICODIN ES [Concomitant]
  10. KEFLEX [Concomitant]
  11. VALIUM [Concomitant]
  12. NAPROXEN (ALEVE) [Concomitant]
  13. LANTUS [Concomitant]
  14. REVLIMID [Suspect]
     Indication: MYELODYSPLASTIC SYNDROME
     Dosage: 5 MG, DAILY X  21 DAYS, PO 10 MG, 1 IN 1 D, PO
     Route: 048
     Dates: start: 20101015
  15. REVLIMID [Suspect]
     Indication: MYELODYSPLASTIC SYNDROME
     Dosage: 5 MG, DAILY X  21 DAYS, PO 10 MG, 1 IN 1 D, PO
     Route: 048
     Dates: start: 20101201
  16. REVLIMID [Suspect]
     Indication: MYELODYSPLASTIC SYNDROME
     Dosage: 5 MG, DAILY X  21 DAYS, PO 10 MG, 1 IN 1 D, PO
     Route: 048
     Dates: start: 20110101
  17. IMODIUM [Concomitant]
  18. MULTIVITAMIN [Concomitant]
  19. PREDNISONE TAB [Concomitant]

REACTIONS (3)
  - PARANEOPLASTIC SYNDROME [None]
  - OSTEOARTHRITIS [None]
  - PAIN [None]
